FAERS Safety Report 9682187 (Version 2)
Quarter: 2013Q4

REPORT INFORMATION
  Report Type: Report from Study
  Country: FR (occurrence: FR)
  Receive Date: 20131111
  Receipt Date: 20131111
  Transmission Date: 20140711
  Serious: Yes (Hospitalization, Other)
  Sender: FDA-Public Use
  Company Number: FR-GILEAD-2013-0082977

PATIENT
  Age: 51 Year
  Sex: Male
  Weight: 104.4 kg

DRUGS (15)
  1. EMTRICITABINE/TENOFOVIR DISOPROXIL FUMARATE [Suspect]
     Indication: HIV INFECTION
     Dosage: 1 DF, QD
     Route: 048
     Dates: start: 20101018
  2. COBICISTAT [Suspect]
     Indication: HIV INFECTION
     Dosage: 150 MG, QD
     Route: 048
     Dates: start: 20101018
  3. ATAZANAVIR /01555902/ [Suspect]
     Indication: HIV INFECTION
     Dosage: 300 MG, QD
     Route: 048
     Dates: start: 20101018
  4. PLACEBO [Suspect]
     Indication: HIV INFECTION
     Dosage: 1 DF, QD
     Route: 048
     Dates: start: 20101018
  5. PRETERAX                           /01421201/ [Concomitant]
     Dosage: UNK MG, UNK
  6. LANTUS [Concomitant]
     Dosage: UNK
  7. ATACAND [Concomitant]
     Dosage: 16 MG, QD
     Dates: start: 20110722
  8. DETENSIEL                          /00802601/ [Concomitant]
     Dosage: 10 MG, QD
  9. HUMALOG MIX [Concomitant]
  10. KARDEGIC [Concomitant]
     Dosage: 75 MG, QD
     Dates: start: 20040907
  11. KALEORID [Concomitant]
     Dosage: 1000 MG, QD
     Dates: start: 20110831
  12. INSULIN [Concomitant]
     Dosage: UNK
     Dates: start: 2004
  13. BIPRETERAX                         /01421201/ [Concomitant]
  14. NISISCO [Concomitant]
  15. AMOXICILLIN [Concomitant]
     Indication: LOWER RESPIRATORY TRACT INFECTION
     Dosage: 3 G, QD
     Dates: start: 20130920, end: 20131004

REACTIONS (1)
  - Diabetes mellitus [Recovered/Resolved]
